FAERS Safety Report 8347692-2 (Version None)
Quarter: 2012Q2

REPORT INFORMATION
  Report Type: 
  Country: None (occurrence: None)
  Receive Date: 20120509
  Receipt Date: 20120426
  Transmission Date: 20120825
  Serious: Yes (Other)
  Sender: FDA-Public Use
  Company Number: US-ELI_LILLY_AND_COMPANY-US201204009813

PATIENT
  Sex: Female

DRUGS (2)
  1. CYMBALTA [Suspect]
     Indication: MIGRAINE
     Dosage: 60 MG, QD
     Dates: start: 20110915
  2. CYMBALTA [Suspect]
     Dosage: UNK, UNKNOWN
     Dates: end: 20111201

REACTIONS (4)
  - BILE DUCT OBSTRUCTION [None]
  - JAUNDICE [None]
  - PRURITUS GENERALISED [None]
  - OFF LABEL USE [None]
